FAERS Safety Report 14827669 (Version 1)
Quarter: 2018Q2

REPORT INFORMATION
  Report Type: Other
  Country: AE (occurrence: AE)
  Receive Date: 20180430
  Receipt Date: 20180430
  Transmission Date: 20180711
  Serious: Yes (Other)
  Sender: FDA-Public Use
  Company Number: AE-EXELTIS USA INC.-2046845

PATIENT
  Age: 38 Year
  Sex: Male

DRUGS (5)
  1. LEVETIRACETAM. [Concomitant]
     Active Substance: LEVETIRACETAM
  2. DEXAMETHASONE. [Concomitant]
     Active Substance: DEXAMETHASONE
  3. NUVESSA [Suspect]
     Active Substance: METRONIDAZOLE
     Indication: BRAIN ABSCESS
  4. FIRST VANCOMYCIN RX [Concomitant]
     Active Substance: VANCOMYCIN HYDROCHLORIDE
  5. CEFTRIAXONE. [Concomitant]
     Active Substance: CEFTRIAXONE

REACTIONS (7)
  - Burning sensation [None]
  - Ataxia [None]
  - Dysphagia [Unknown]
  - Balance disorder [None]
  - Neurotoxicity [Unknown]
  - Dysphonia [Unknown]
  - Dysarthria [None]
